FAERS Safety Report 11230696 (Version 2)
Quarter: 2015Q3

REPORT INFORMATION
  Report Type: Spontaneous
  Country: US (occurrence: None)
  Receive Date: 20150629
  Receipt Date: 20150723
  Transmission Date: 20151125
  Serious: Yes (Other)
  Sender: FDA-Public Use
  Company Number: KAD201506-001848

PATIENT
  Age: 73 Year
  Sex: Female
  Weight: 60.78 kg

DRUGS (11)
  1. RIBAVIRIN (RIBAVIRIN) [Suspect]
     Active Substance: RIBAVIRIN
     Indication: HEPATITIS C
     Route: 048
     Dates: start: 20150603, end: 20150617
  2. DEXILANT [Concomitant]
     Active Substance: DEXLANSOPRAZOLE
  3. ZOFRAN (ONDANSETRON) [Concomitant]
  4. AZELASTINE (AZELASTINE) [Concomitant]
  5. MIACALCIN (CALCITONIN, SALMON) [Concomitant]
  6. MAXALT (RIZATRIPTAN BENZOATE) [Concomitant]
     Active Substance: RIZATRIPTAN BENZOATE
  7. LOSARTAN (LOSARTAN) [Concomitant]
     Active Substance: LOSARTAN
  8. MELOXICAM (MELOXICAM) [Concomitant]
     Active Substance: MELOXICAM
  9. VIEKIRA PAK [Suspect]
     Active Substance: DASABUVIR\OMBITASVIR\PARITAPREVIR\RITONAVIR
     Indication: HEPATITIS C
     Dosage: 3 TABLET IN AM, 1 TABLET IN PM
     Route: 048
     Dates: start: 20150603, end: 20150617
  10. FIORICET; AXOTAL (CAFFEINE, BUTALBITAL, PARACETAMOL) [Concomitant]
  11. LIBRAX (CHLORDIAZEPOXIDE HYDROCHLORIDE, CLIDINIUM BROMIDE) [Concomitant]

REACTIONS (7)
  - Tinnitus [None]
  - Dysgeusia [None]
  - Headache [None]
  - Vision blurred [None]
  - Swollen tongue [None]
  - Dyspnoea [None]
  - Paraesthesia oral [None]

NARRATIVE: CASE EVENT DATE: 20150613
